FAERS Safety Report 4875292-5 (Version None)
Quarter: 2006Q1

REPORT INFORMATION
  Report Type: 
  Country: None (occurrence: None)
  Receive Date: 20060104
  Receipt Date: 20051215
  Transmission Date: 20060701
  Serious: Yes (Hospitalization)
  Sender: FDA-Public Use
  Company Number: 2005172506

PATIENT
  Age: 78 Year
  Sex: Male

DRUGS (7)
  1. ATARAX [Suspect]
     Indication: ILL-DEFINED DISORDER
     Dosage: 25 MG (DAILY), INHALATION
     Route: 055
     Dates: start: 20051109
  2. BRICANYL [Suspect]
     Indication: ILL-DEFINED DISORDER
     Dosage: ^ 2 DF ^ (DAILY), INHALATION
     Route: 055
     Dates: start: 20051109, end: 20051111
  3. DOMPERIDONE (DOMPERIDINE) [Suspect]
     Indication: ILL-DEFINED DISORDER
     Dosage: ^ 3 DF ^ (DAILY), ORAL
     Route: 048
     Dates: start: 20051109
  4. FOSFOMYCIN SODIUM (FOSFOMYCIN SODIUM) [Suspect]
     Indication: ILL-DEFINED DISORDER
     Dosage: ^ 4 DF ^ (DAILY), INTRAVENOUS
     Route: 042
     Dates: start: 20051025, end: 20051114
  5. TIENAM (CILASTATIN, IMIPENEM) [Suspect]
     Indication: ILL-DEFINED DISORDER
     Dosage: ^ 2 DF ^ (DAILY), INTRAVENOUS
     Route: 042
     Dates: start: 20051025, end: 20051114
  6. HYPERIUM (RILMENIDINE) [Suspect]
     Indication: ESSENTIAL HYPERTENSION
     Dosage: ^ 2 DF ^ (DAILY), ORAL
     Route: 048
     Dates: start: 20051109
  7. FOZITEC (FOSINOPRIL) [Concomitant]

REACTIONS (3)
  - ERYTHEMA [None]
  - ESSENTIAL HYPERTENSION [None]
  - PRURITUS [None]
